FAERS Safety Report 12971138 (Version 2)
Quarter: 2016Q4

REPORT INFORMATION
  Report Type: Spontaneous
  Country: US (occurrence: US)
  Receive Date: 20161123
  Receipt Date: 20161128
  Transmission Date: 20170207
  Serious: No
  Sender: FDA-Public Use
  Company Number: US-JAZZ-2016-US-019045

PATIENT
  Sex: Female

DRUGS (22)
  1. CARAFATE [Concomitant]
     Active Substance: SUCRALFATE
  2. CHLORDIAZEPOXIDE W/CLIDINIUM [Concomitant]
  3. PROMETHAZINE [Concomitant]
     Active Substance: PROMETHAZINE\PROMETHAZINE HYDROCHLORIDE
  4. PRILOSEC [Concomitant]
     Active Substance: OMEPRAZOLE MAGNESIUM
  5. XYREM [Suspect]
     Active Substance: SODIUM OXYBATE
     Dosage: 4.5 G, BID
     Route: 048
     Dates: start: 201604
  6. GABAPENTIN. [Concomitant]
     Active Substance: GABAPENTIN
  7. ZOFRAN [Concomitant]
     Active Substance: ONDANSETRON HYDROCHLORIDE
  8. AMITRIPTYLINE HCL [Concomitant]
     Active Substance: AMITRIPTYLINE
  9. ATENOLOL. [Concomitant]
     Active Substance: ATENOLOL
  10. TOPAMAX [Concomitant]
     Active Substance: TOPIRAMATE
  11. XYREM [Suspect]
     Active Substance: SODIUM OXYBATE
     Indication: NARCOLEPSY
     Dosage: 2.25 G, BID
     Route: 048
     Dates: start: 201603, end: 2016
  12. XYREM [Suspect]
     Active Substance: SODIUM OXYBATE
     Dosage: DOSE ADJUSTMENTS
     Route: 048
     Dates: start: 2016, end: 201604
  13. LEVETIRACETAM. [Concomitant]
     Active Substance: LEVETIRACETAM
  14. NOVOLOG [Concomitant]
     Active Substance: INSULIN ASPART
  15. LIALDA [Concomitant]
     Active Substance: MESALAMINE
  16. TRAMADOL HCL [Concomitant]
     Active Substance: TRAMADOL HYDROCHLORIDE
  17. TYLENOL EXTRA STRENGTH [Concomitant]
     Active Substance: ACETAMINOPHEN
  18. NEUPRO [Concomitant]
     Active Substance: ROTIGOTINE
  19. CLONAZEPAM. [Concomitant]
     Active Substance: CLONAZEPAM
  20. MODAFINIL. [Concomitant]
     Active Substance: MODAFINIL
  21. REMICADE [Concomitant]
     Active Substance: INFLIXIMAB
  22. SUMATRIPTAN SUCCINATE. [Concomitant]
     Active Substance: SUMATRIPTAN SUCCINATE

REACTIONS (3)
  - Unevaluable event [Unknown]
  - Fatigue [Unknown]
  - Nausea [Unknown]

NARRATIVE: CASE EVENT DATE: 2016
